FAERS Safety Report 10541733 (Version 7)
Quarter: 2015Q2

REPORT INFORMATION
  Report Type: Report from Study
  Country: JP (occurrence: JP)
  Receive Date: 20141024
  Receipt Date: 20150515
  Transmission Date: 20150821
  Serious: Yes (Death, Hospitalization, Other)
  Sender: FDA-Public Use
  Company Number: JP-CELGENE-JPN-2014103741

PATIENT
  Age: 53 Year
  Sex: Male
  Weight: 57.8 kg

DRUGS (30)
  1. WHITE PETROLATUM [Concomitant]
     Active Substance: PETROLATUM
     Indication: PSORIASIS
     Dosage: 1 EXPOSURE
     Route: 061
     Dates: start: 20140327
  2. NAPROXEN. [Concomitant]
     Active Substance: NAPROXEN
     Route: 048
     Dates: start: 20141130, end: 20141212
  3. ATROPINE SULFATE. [Concomitant]
     Active Substance: ATROPINE SULFATE
     Indication: PRODUCT USED FOR UNKNOWN INDICATION
     Dosage: 500 MILLIGRAM
     Route: 041
     Dates: start: 20141023, end: 20141023
  4. ADRENALINE [Concomitant]
     Active Substance: EPINEPHRINE
     Indication: PRODUCT USED FOR UNKNOWN INDICATION
     Route: 039
     Dates: start: 20141023, end: 20141023
  5. POVIDONE IODINE [Concomitant]
     Active Substance: POVIDONE-IODINE
     Indication: BIOPSY LUNG
     Dosage: 180 MILLIGRAM
     Route: 061
     Dates: start: 20141107, end: 20141107
  6. CC-10004 [Suspect]
     Active Substance: APREMILAST
     Indication: PSORIASIS
     Route: 048
     Dates: start: 20140403
  7. CC-10004 [Suspect]
     Active Substance: APREMILAST
     Indication: PSORIASIS
     Dosage: 1 MILLIGRAM
     Route: 048
     Dates: end: 20141016
  8. LEVOFLOXACIN HEMIHYDRATE [Concomitant]
     Active Substance: LEVOFLOXACIN
     Indication: PRODUCT USED FOR UNKNOWN INDICATION
     Route: 048
     Dates: start: 20141023, end: 20141027
  9. CEFTRIAXONE SODIUM HYDRATE [Concomitant]
     Active Substance: CEFTRIAXONE SODIUM
     Indication: METASTASIS
     Route: 041
     Dates: start: 20141107, end: 20141119
  10. NAPROXEN. [Concomitant]
     Active Substance: NAPROXEN
     Indication: METASTASIS
     Route: 048
     Dates: start: 20141107
  11. PEMETREXED SODIUM HYDRATE [Concomitant]
     Active Substance: PEMETREXED
     Indication: METASTASIS
     Route: 041
     Dates: start: 20141109, end: 20141117
  12. TRANEXAMIC ACID. [Concomitant]
     Active Substance: TRANEXAMIC ACID
     Indication: PRODUCT USED FOR UNKNOWN INDICATION
     Route: 048
     Dates: start: 20141023, end: 20141023
  13. LOXOPROFEN SODIUM HYDRATE [Concomitant]
     Active Substance: LOXOPROFEN SODIUM DIHYDRATE
     Indication: CHEST PAIN
     Dosage: .5 MILLIGRAM
     Route: 048
     Dates: start: 20141031
  14. HYDRO ETHANOL [Concomitant]
     Indication: BIOPSY LUNG
     Dosage: 150 MILLIGRAM
     Route: 061
     Dates: start: 20141107, end: 20141107
  15. DEXTROMETHORPHAN HYDROBROMIDE HYDRATE [Concomitant]
     Indication: COUGH
     Route: 048
     Dates: start: 20141031
  16. CARBAZOCHROME SODIUM [Concomitant]
     Indication: PRODUCT USED FOR UNKNOWN INDICATION
     Route: 048
     Dates: start: 20141023, end: 20141027
  17. TRANEXAMIC ACID. [Concomitant]
     Active Substance: TRANEXAMIC ACID
     Route: 048
     Dates: start: 20141023, end: 20141027
  18. SOLDEM [Concomitant]
     Active Substance: DEXTROSE\POTASSIUM CHLORIDE\SODIUM CHLORIDE\SODIUM LACTATE
     Indication: PRODUCT USED FOR UNKNOWN INDICATION
     Route: 041
     Dates: start: 20141023, end: 20141023
  19. SOLDEM [Concomitant]
     Active Substance: DEXTROSE\POTASSIUM CHLORIDE\SODIUM CHLORIDE\SODIUM LACTATE
     Route: 041
     Dates: start: 20141107, end: 20141107
  20. SULBENICILLIN [Concomitant]
     Indication: METASTASIS
     Route: 041
     Dates: start: 20141109, end: 20141111
  21. MORPHINE HYDROCHLORIDE [Concomitant]
     Active Substance: MORPHINE HYDROCHLORIDE
     Indication: PRODUCT USED FOR UNKNOWN INDICATION
     Route: 041
     Dates: start: 20141212, end: 20141212
  22. CARBAZOCHROME SODIUM [Concomitant]
     Route: 048
     Dates: start: 20141023, end: 20141023
  23. TEPRENONE [Concomitant]
     Active Substance: TEPRENONE
     Indication: PROPHYLAXIS
     Dosage: .5 MILLIGRAM
     Route: 048
     Dates: start: 20141031
  24. CARBOPLATIN. [Concomitant]
     Active Substance: CARBOPLATIN
     Indication: PRODUCT USED FOR UNKNOWN INDICATION
     Route: 065
     Dates: start: 20141117
  25. LOPREZOL [Concomitant]
     Indication: SCAN WITH CONTRAST
     Route: 041
     Dates: start: 20141106, end: 20141119
  26. CODEINE PHOSPHATE HYDRATE [Concomitant]
     Active Substance: CODEINE PHOSPHATE
     Indication: METASTASIS
     Route: 048
     Dates: start: 20141107, end: 20141109
  27. PREDNISOLONE. [Concomitant]
     Active Substance: PREDNISOLONE
     Indication: PSORIASIS
     Route: 061
     Dates: start: 20140327
  28. HYDROXYZINE [Concomitant]
     Active Substance: HYDROXYZINE\HYDROXYZINE HYDROCHLORIDE
     Indication: PRODUCT USED FOR UNKNOWN INDICATION
     Route: 041
     Dates: start: 20141023, end: 20141023
  29. LIDOCAINE HYDROCHLORIDE. [Concomitant]
     Active Substance: LIDOCAINE HYDROCHLORIDE
     Indication: BIOPSY LUNG
     Route: 061
     Dates: start: 20141107, end: 20141107
  30. BROCIN-CODEINE [Concomitant]
     Indication: METASTASIS
     Route: 048
     Dates: start: 20141110

REACTIONS (1)
  - Large cell lung cancer metastatic [Fatal]

NARRATIVE: CASE EVENT DATE: 20141016
